FAERS Safety Report 9156820 (Version 2)
Quarter: 2013Q1

REPORT INFORMATION
  Report Type: Spontaneous
  Country: ES (occurrence: None)
  Receive Date: 20130206
  Receipt Date: 20130213
  Transmission Date: 20140127
  Serious: Yes (Hospitalization, Other)
  Sender: FDA-Public Use
  Company Number: INT_00200_2013

PATIENT
  Age: 73 Year
  Sex: Male

DRUGS (5)
  1. MEROPENEM [Suspect]
     Indication: PNEUMONIA
     Dosage: (2 G BID INTRAVENOUS (NOT OTHERWISE SPECIFIED))
     Route: 042
     Dates: start: 20120907
  2. CUBICIN [Suspect]
     Indication: PRODUCT USED FOR UNKNOWN INDICATION
     Dosage: (350 MG QD INTRAVENOUS (NOT OTHERWISE SPECIFIED))
     Route: 042
     Dates: start: 20120910, end: 20120910
  3. METRONIDAZOL [Suspect]
     Indication: DIARRHOEA
     Route: 048
     Dates: start: 20120907, end: 20120914
  4. CLEXANE [Suspect]
     Indication: PROPHYLAXIS
     Dosage: (DF SUBCUTANEOUS)
     Route: 058
     Dates: start: 20120811
  5. RIFALDIN [Suspect]
     Dosage: (600 MG QD)
     Dates: start: 20120903, end: 20120914

REACTIONS (1)
  - Pancytopenia [None]
